FAERS Safety Report 20720628 (Version 2)
Quarter: 2022Q2

REPORT INFORMATION
  Report Type: Spontaneous
  Country: NL (occurrence: NL)
  Receive Date: 20220418
  Receipt Date: 20220422
  Transmission Date: 20220721
  Serious: Yes (Hospitalization)
  Sender: FDA-Public Use
  Company Number: NL-TEVA-2022-NL-2016031

PATIENT
  Age: 35 Year
  Sex: Female

DRUGS (7)
  1. LABETALOL [Suspect]
     Active Substance: LABETALOL\LABETALOL HYDROCHLORIDE
     Indication: Hypertension
     Dosage: 600 MILLIGRAM, QD, 600 MILLIGRAM DAILY
     Route: 065
  2. NIFEDIPINE [Suspect]
     Active Substance: NIFEDIPINE
     Indication: Hypertension
     Dosage: 30 MILLIGRAM
     Route: 065
  3. THIOGUANINE ANHYDROUS [Suspect]
     Active Substance: THIOGUANINE ANHYDROUS
     Indication: Colitis ulcerative
     Dosage: 10 MILLIGRAM, QD, 10 MILLIGRAM DAILY
     Route: 048
  4. METHYLDOPA [Suspect]
     Active Substance: METHYLDOPA
     Indication: Hypertension
     Dosage: 2250 MILLIGRAM, QD, 2250 MILLIGRAM DAILY
     Route: 065
  5. BUDESONIDE [Concomitant]
     Active Substance: BUDESONIDE
     Indication: Colitis ulcerative
     Dosage: UNK
  6. CALCIUM [Concomitant]
     Active Substance: CALCIUM
     Dosage: 1000 MILLIGRAM
  7. Ascal [Concomitant]
     Dosage: 100 MILLIGRAM

REACTIONS (5)
  - Maternal exposure during pregnancy [Unknown]
  - Pre-eclampsia [Recovered/Resolved]
  - Exposure via breast milk [Unknown]
  - Blood pressure abnormal [Unknown]
  - Live birth [Unknown]
